FAERS Safety Report 4829448-8 (Version None)
Quarter: 2005Q4

REPORT INFORMATION
  Report Type: 
  Country: None (occurrence: None)
  Receive Date: 20051116
  Receipt Date: 20050929
  Transmission Date: 20060501
  Serious: Yes (Death, Hospitalization)
  Sender: FDA-Public Use
  Company Number: US-MERCK-0510USA00347

PATIENT
  Age: 82 Year
  Sex: Male
  Weight: 75 kg

DRUGS (11)
  1. VIOXX [Suspect]
     Indication: RHEUMATOID ARTHRITIS
     Route: 048
     Dates: start: 20000101, end: 20010201
  2. TEQUIN [Concomitant]
     Route: 065
  3. LANOXIN [Concomitant]
     Route: 065
  4. PREVACID [Concomitant]
     Route: 065
  5. ENBREL [Concomitant]
     Route: 065
  6. METHOTREXATE [Concomitant]
     Route: 065
  7. SERZONE [Concomitant]
     Route: 065
  8. IRON (UNSPECIFIED) [Concomitant]
     Route: 065
  9. VICODIN [Concomitant]
     Route: 065
  10. PREDNISONE [Concomitant]
     Route: 065
  11. ALBUTEROL [Concomitant]
     Route: 065

REACTIONS (9)
  - ATRIAL FIBRILLATION [None]
  - CEREBROVASCULAR ACCIDENT [None]
  - CHEST PAIN [None]
  - CLOSED HEAD INJURY [None]
  - DEATH [None]
  - DEPRESSED LEVEL OF CONSCIOUSNESS [None]
  - LOBAR PNEUMONIA [None]
  - PYREXIA [None]
  - RESPIRATORY FAILURE [None]
